FAERS Safety Report 13772389 (Version 1)
Quarter: 2017Q3

REPORT INFORMATION
  Report Type: Spontaneous
  Country: FR (occurrence: FR)
  Receive Date: 20170720
  Receipt Date: 20170720
  Transmission Date: 20171127
  Serious: Yes (Other)
  Sender: FDA-Public Use
  Company Number: FR-AUROBINDO-AUR-APL-2017-37152

PATIENT
  Sex: Male

DRUGS (1)
  1. PREDNISONE ARROW TABLET 20MG [Suspect]
     Active Substance: PREDNISONE
     Indication: PRODUCT USED FOR UNKNOWN INDICATION
     Route: 048

REACTIONS (2)
  - Drug dispensing error [Unknown]
  - Haematochezia [Unknown]

NARRATIVE: CASE EVENT DATE: 2017
